FAERS Safety Report 8815369 (Version 1)
Quarter: 2012Q4

REPORT INFORMATION
  Report Type: 
  Country: US (occurrence: US)
  Receive Date: 20120928
  Receipt Date: 20120928
  Transmission Date: 20130627
  Serious: Yes (Other)
  Sender: FDA-Public Use
  Company Number: CHPA2012US020468

PATIENT
  Age: 69 Year
  Sex: Male

DRUGS (2)
  1. EXCEDRIN EXTRA STRENGTH [Suspect]
     Indication: HEADACHE
     Dosage: 1 DF, just about every day
     Route: 048
  2. ADVIL /00109201/ [Concomitant]
     Indication: PAIN
     Dosage: 1 DF, PRN
     Route: 048

REACTIONS (6)
  - Appendicitis perforated [Recovered/Resolved]
  - Hernia [Not Recovered/Not Resolved]
  - Rotator cuff syndrome [Recovered/Resolved]
  - Hypersensitivity [Recovered/Resolved]
  - Underdose [Unknown]
  - Drug hypersensitivity [None]
